FAERS Safety Report 6419593-8 (Version None)
Quarter: 2009Q4

REPORT INFORMATION
  Report Type: 
  Country: None (occurrence: None)
  Receive Date: 20091029
  Receipt Date: 20091019
  Transmission Date: 20100525
  Serious: Yes (Life-Threatening)
  Sender: FDA-Public Use
  Company Number: US-AVENTIS-200919497US

PATIENT
  Sex: Female
  Weight: 80.74 kg

DRUGS (9)
  1. LEFLUNOMIDE [Suspect]
     Indication: RHEUMATOID ARTHRITIS
     Route: 048
     Dates: start: 20070101, end: 20090701
  2. LIPITOR [Concomitant]
     Dosage: DOSE: 10 MG QOD
  3. TRAMADOL HCL [Concomitant]
  4. ASTIPRO NASAL SPRAY [Concomitant]
     Dosage: DOSE: UNK
  5. MULTI-VITAMINS [Concomitant]
     Dosage: DOSE: UNK
  6. CALCIUM [Concomitant]
     Dosage: DOSE: UNK
  7. TYLENOL [Concomitant]
     Dosage: DOSE: UNK
  8. SOLARAZE [Concomitant]
     Dosage: DOSE: UNK
  9. TUMS                               /00108001/ [Concomitant]
     Dosage: DOSE: UNK

REACTIONS (5)
  - DIPLOPIA [None]
  - IDIOPATHIC THROMBOCYTOPENIC PURPURA [None]
  - MYASTHENIA GRAVIS [None]
  - PLATELET COUNT DECREASED [None]
  - SPLENOMEGALY [None]
